FAERS Safety Report 9329595 (Version 1)
Quarter: 2013Q2

REPORT INFORMATION
  Report Type: Spontaneous
  Country: US (occurrence: US)
  Receive Date: 20130604
  Receipt Date: 20130604
  Transmission Date: 20140414
  Serious: No
  Sender: FDA-Public Use
  Company Number: US-SANOFI-AVENTIS-2012SA088801

PATIENT
  Age: 64 Year
  Sex: Female

DRUGS (4)
  1. LANTUS SOLOSTAR [Suspect]
     Indication: TYPE 2 DIABETES MELLITUS
     Dosage: REPORTED PRODUCT START DATE: 6 MONTHS AGO. DOSE:60 UNIT(S)
     Route: 058
     Dates: start: 2012
  2. SOLOSTAR [Suspect]
     Indication: TYPE 2 DIABETES MELLITUS
     Dates: start: 2012
  3. HUMALOG [Suspect]
     Indication: TYPE 2 DIABETES MELLITUS
     Route: 065
  4. GLUCOPHAGE [Concomitant]
     Indication: TYPE 2 DIABETES MELLITUS
     Dates: start: 2007

REACTIONS (5)
  - Musculoskeletal stiffness [Not Recovered/Not Resolved]
  - Local swelling [Not Recovered/Not Resolved]
  - Weight increased [Not Recovered/Not Resolved]
  - Nightmare [Not Recovered/Not Resolved]
  - Blood glucose increased [Not Recovered/Not Resolved]
